FAERS Safety Report 18748816 (Version 2)
Quarter: 2022Q1

REPORT INFORMATION
  Report Type: Spontaneous
  Country: US (occurrence: US)
  Receive Date: 20210116
  Receipt Date: 20220124
  Transmission Date: 20220423
  Serious: No
  Sender: FDA-Public Use
  Company Number: US-JNJFOC-20210110519

PATIENT
  Age: 60 Year
  Sex: Male
  Weight: 99.880 kg

DRUGS (1)
  1. MENS ROGAINE EXTRA STRENGTH [Suspect]
     Active Substance: MINOXIDIL
     Indication: Alopecia
     Dosage: AS DIRRECTED 1X A DAY?LAST ADMINISTERED ON 4/JAN/2021
     Route: 061
     Dates: start: 202011

REACTIONS (3)
  - Lip swelling [Recovering/Resolving]
  - Lip pain [Not Recovered/Not Resolved]
  - Inappropriate schedule of product administration [Unknown]

NARRATIVE: CASE EVENT DATE: 20201101
